FAERS Safety Report 4418036-3 (Version None)
Quarter: 2004Q3

REPORT INFORMATION
  Report Type: 
  Country: None (occurrence: None)
  Receive Date: 20040803
  Receipt Date: 20040720
  Transmission Date: 20050211
  Serious: Yes (Death)
  Sender: FDA-Public Use
  Company Number: SE-JNJFOC-20040607396

PATIENT
  Age: 50 Year
  Sex: Male

DRUGS (7)
  1. HALDOL [Suspect]
     Indication: BIPOLAR I DISORDER
     Dosage: 10 MG, IN 1 DAY, INTRA-MUSCULAR
     Route: 030
     Dates: start: 20031105, end: 20031113
  2. HEMINEVRIN (CLOMETHAZOLE EDISILATE) CAPSULES [Suspect]
     Indication: INSOMNIA
     Dosage: 300 MG, IN 1 DAY, ORAL
     Route: 048
     Dates: start: 20031105, end: 20031116
  3. ZYPREXA [Suspect]
     Indication: BIPOLAR I DISORDER
     Dosage: 10 MG, IN 1 DAY,
     Dates: start: 20031107, end: 20031115
  4. DIAZEPAM [Suspect]
     Indication: BIPOLAR I DISORDER
     Dosage: 10 MG, 1 IN DAY, INTRA-MUSCULAR
     Route: 030
     Dates: start: 20031105, end: 20031113
  5. CISORDINOL (CLOPENTHIXOL HYDROCHLORIDE) INJECTION [Suspect]
     Indication: BIPOLAR I DISORDER
     Dosage: 100 MG, IN 1 DAY, INTRA-MUSCULAR
     Route: 030
     Dates: start: 20031105, end: 20031113
  6. LITHIONIT (LITHIUM SULFATE) SUSTAINED RELEASE TABLETS [Suspect]
     Indication: BIPOLAR I DISORDER
     Dosage: 0.2 G, IN 1 DAY, ORAL
     Route: 048
     Dates: start: 20031105
  7. DISIPAL (FILM COATED TABLET) ORPHENADRINE HYDROCHLORIDE [Concomitant]

REACTIONS (9)
  - ALANINE AMINOTRANSFERASE INCREASED [None]
  - ASPARTATE AMINOTRANSFERASE INCREASED [None]
  - CARDIOMEGALY [None]
  - DRUG TOXICITY [None]
  - GAMMA-GLUTAMYLTRANSFERASE INCREASED [None]
  - HYPERAEMIA [None]
  - PULMONARY OEDEMA [None]
  - REFUSAL OF TREATMENT BY PATIENT [None]
  - SOMNOLENCE [None]
